FAERS Safety Report 6554306-0 (Version None)
Quarter: 2010Q1

REPORT INFORMATION
  Report Type: 
  Country: None (occurrence: None)
  Receive Date: 20100127
  Receipt Date: 20100118
  Transmission Date: 20100710
  Serious: Yes (Hospitalization)
  Sender: FDA-Public Use
  Company Number: FR-JNJFOC-20091004319

PATIENT
  Sex: Female
  Weight: 43 kg

DRUGS (4)
  1. REMINYL [Suspect]
     Indication: DEMENTIA ALZHEIMER'S TYPE
     Route: 048
  2. SEROPLEX [Concomitant]
  3. VASTAREL [Concomitant]
  4. IBANDRONIC ACID [Concomitant]

REACTIONS (12)
  - BILIARY CYST [None]
  - DECREASED APPETITE [None]
  - DEHYDRATION [None]
  - FAECALOMA [None]
  - GENERAL PHYSICAL HEALTH DETERIORATION [None]
  - HEPATIC CYST [None]
  - HYPOKALAEMIA [None]
  - INFLAMMATION [None]
  - NAUSEA [None]
  - RENAL FAILURE [None]
  - RENAL TUBULAR ACIDOSIS [None]
  - WEIGHT DECREASED [None]
